FAERS Safety Report 25540480 (Version 2)
Quarter: 2025Q3

REPORT INFORMATION
  Report Type: Other
  Country: US (occurrence: US)
  Receive Date: 20250710
  Receipt Date: 20250807
  Transmission Date: 20251021
  Serious: Yes (Other)
  Sender: TRAVERE THERAPEUTICS
  Company Number: US-TRAVERE-2025TVT01020

PATIENT
  Age: 25 Year
  Sex: Male

DRUGS (3)
  1. FILSPARI [Suspect]
     Active Substance: SPARSENTAN
     Indication: IgA nephropathy
     Route: 048
  2. FILSPARI [Suspect]
     Active Substance: SPARSENTAN
     Route: 048
     Dates: start: 20250627
  3. FILSPARI [Suspect]
     Active Substance: SPARSENTAN
     Dosage: DOSE DECREASED
     Route: 048
     Dates: start: 202506

REACTIONS (2)
  - Lower limb fracture [Unknown]
  - Dizziness [Recovered/Resolved]
